FAERS Safety Report 7237303-1 (Version None)
Quarter: 2011Q1

REPORT INFORMATION
  Report Type: 
  Country: None (occurrence: None)
  Receive Date: 20110121
  Receipt Date: 20110103
  Transmission Date: 20110831
  Serious: Yes (Other)
  Sender: FDA-Public Use
  Company Number: BR-TYCO HEALTHCARE/MALLINCKRODT-T201100035

PATIENT
  Age: 76 Year
  Sex: Female

DRUGS (6)
  1. CONRAY [Suspect]
  2. CEPHALEXIN [Concomitant]
     Indication: ANTIBIOTIC THERAPY
  3. CONRAY [Suspect]
  4. CAPTOPRIL [Concomitant]
     Indication: HYPERTENSION
  5. CONRAY [Suspect]
     Indication: COMPUTERISED TOMOGRAM
     Dosage: 80 ML, SINGLE
     Route: 042
     Dates: start: 20101213, end: 20101213
  6. CONRAY [Suspect]

REACTIONS (2)
  - DYSPNOEA [None]
  - MALAISE [None]
